APPROVED DRUG PRODUCT: NYSTATIN
Active Ingredient: NYSTATIN
Strength: 500,000 UNITS
Dosage Form/Route: TABLET;ORAL
Application: A062525 | Product #001
Applicant: QUANTUM PHARMICS LTD
Approved: Oct 29, 1984 | RLD: No | RS: No | Type: DISCN